FAERS Safety Report 17961995 (Version 1)
Quarter: 2020Q2

REPORT INFORMATION
  Report Type: Spontaneous
  Country: US (occurrence: US)
  Receive Date: 20200630
  Receipt Date: 20200630
  Transmission Date: 20200714
  Serious: No
  Sender: FDA-Public Use
  Company Number: US-TERSERA THERAPEUTICS LLC-2020TRS001191

PATIENT

DRUGS (4)
  1. ZOLADEX [Suspect]
     Active Substance: GOSERELIN ACETATE
     Dosage: 10.8 MG, EVERY THREE MONTHS
     Route: 058
     Dates: start: 20200504
  2. ZOLADEX [Suspect]
     Active Substance: GOSERELIN ACETATE
     Indication: THERAPEUTIC OVARIAN SUPPRESSION
     Dosage: UNK
     Route: 058
     Dates: start: 2020
  3. ZOLADEX [Suspect]
     Active Substance: GOSERELIN ACETATE
     Dosage: 10.8 MG, EVERY THREE MONTHS
     Route: 058
     Dates: start: 20200505
  4. ARIMIDEX [Concomitant]
     Active Substance: ANASTROZOLE
     Indication: PRODUCT USED FOR UNKNOWN INDICATION
     Dosage: UNK
     Route: 065

REACTIONS (3)
  - Product administration error [Unknown]
  - Expulsion of medication [Unknown]
  - Off label use [Unknown]

NARRATIVE: CASE EVENT DATE: 20200504
